FAERS Safety Report 8969645 (Version 2)
Quarter: 2013Q2

REPORT INFORMATION
  Report Type: Spontaneous
  Country: US (occurrence: US)
  Receive Date: 20121218
  Receipt Date: 20130522
  Transmission Date: 20140414
  Serious: No
  Sender: FDA-Public Use
  Company Number: US-009507513-1212USA004827

PATIENT
  Sex: Female

DRUGS (1)
  1. IMPLANON [Suspect]
     Dosage: 1 DF, UNK
     Dates: start: 20111005, end: 20130320

REACTIONS (4)
  - Haemorrhage [Unknown]
  - Product quality issue [Unknown]
  - Depression [Unknown]
  - Medical device complication [Unknown]
